FAERS Safety Report 9145590 (Version 1)
Quarter: 2013Q1

REPORT INFORMATION
  Report Type: Spontaneous
  Country: US (occurrence: US)
  Receive Date: 20130307
  Receipt Date: 20130307
  Transmission Date: 20140127
  Serious: No
  Sender: FDA-Public Use
  Company Number: US-PFIZER INC-2013074912

PATIENT
  Age: 71 Year
  Sex: Male
  Weight: 88.44 kg

DRUGS (3)
  1. VIAGRA [Suspect]
     Indication: ERECTILE DYSFUNCTION
     Dosage: 100 MG, AS NEEDED
     Route: 048
  2. METOPROLOL [Concomitant]
     Indication: ATRIAL FIBRILLATION
     Dosage: 50 MG, 2X/DAY
  3. COUMADIN [Concomitant]
     Indication: ANTICOAGULANT THERAPY
     Dosage: 5 MG THREE DAYS IN A WEEK AND 2.5 MG FOR FOUR DAYS IN A WEEK, 1X/DAY

REACTIONS (3)
  - Hypoaesthesia [Unknown]
  - Alopecia [Unknown]
  - Blood cholesterol increased [Unknown]
